FAERS Safety Report 9988742 (Version 1)
Quarter: 2013Q4

REPORT INFORMATION
  Report Type: Spontaneous
  Country: US (occurrence: None)
  Receive Date: 20131007
  Receipt Date: 20131007
  Transmission Date: 20140711
  Serious: Yes (Hospitalization)
  Sender: FDA-Public Use
  Company Number: 1713747-2013-99953

PATIENT
  Age: 59 Year
  Sex: Female
  Weight: 64.9 kg

DRUGS (3)
  1. DELFLEX PD [Suspect]
     Indication: PERITONEAL DIALYSIS
  2. LIBERTY CYCLER [Concomitant]
  3. LIBERTY TUBING [Concomitant]

REACTIONS (2)
  - Dysarthria [None]
  - Cerebrovascular accident [None]
